FAERS Safety Report 21473303 (Version 1)
Quarter: 2022Q4

REPORT INFORMATION
  Report Type: Spontaneous
  Country: US (occurrence: None)
  Receive Date: 20221017
  Receipt Date: 20221017
  Transmission Date: 20230113
  Serious: Yes (Hospitalization)
  Sender: FDA-Public Use
  Company Number: None

PATIENT
  Age: 92 Year
  Sex: Female

DRUGS (13)
  1. ERLEADA [Suspect]
     Active Substance: APALUTAMIDE
     Indication: Prostate cancer
     Dosage: FREQUENCY : DAILY;?
     Route: 048
     Dates: start: 202209, end: 20221014
  2. AMBIEN [Concomitant]
  3. FLOMAX [Concomitant]
  4. FLONASE ALLERGY RELIEF [Concomitant]
  5. ISOVUE 200 [Concomitant]
     Active Substance: IOPAMIDOL
  6. LASIX [Concomitant]
  7. LUPRON DEPOT [Concomitant]
  8. NITROSTAT [Concomitant]
  9. PREDNISONE [Concomitant]
  10. PROTONIX [Concomitant]
  11. SENOKOT EXTRA STRENGTH [Concomitant]
  12. SYMBICORT [Concomitant]
  13. ZESTRIL [Concomitant]

REACTIONS (1)
  - Therapy interrupted [None]

NARRATIVE: CASE EVENT DATE: 20221014
